FAERS Safety Report 7301561 (Version 2)
Quarter: 2014Q1

REPORT INFORMATION
  Report Type: Spontaneous
  Country: CA (occurrence: CA)
  Receive Date: 20100302
  Receipt Date: 20140303
  Transmission Date: 20141002
  Serious: Yes (Other)
  Sender: FDA-Public Use
  Company Number: CA-JNJFOC-20100210252

PATIENT
  Age: 60 Year
  Sex: Female

DRUGS (1)
  1. RISPERDAL CONSTA [Suspect]
     Indication: PRODUCT USED FOR UNKNOWN INDICATION
     Route: 030
     Dates: start: 20081017, end: 20090409

REACTIONS (16)
  - Auricular swelling [Recovered/Resolved]
  - Pulmonary oedema [Recovered/Resolved]
  - Bladder disorder [Recovered/Resolved]
  - Hypoacusis [Recovered/Resolved]
  - Lymphadenopathy [Recovered/Resolved]
  - Nervous system disorder [Recovered/Resolved]
  - Ovarian disorder [Recovered/Resolved]
  - Renal disorder [Recovered/Resolved]
  - Face oedema [Recovered/Resolved]
  - Gait disturbance [Recovered/Resolved]
  - Fluid retention [Recovered/Resolved]
  - Decreased activity [Recovered/Resolved]
  - Myocardial infarction [Recovered/Resolved]
  - Generalised oedema [Recovered/Resolved]
  - Local swelling [Recovered/Resolved]
  - Change of bowel habit [Recovered/Resolved]
